FAERS Safety Report 13306346 (Version 1)
Quarter: 2017Q1

REPORT INFORMATION
  Report Type: Spontaneous
  Country: TR (occurrence: TR)
  Receive Date: 20170308
  Receipt Date: 20170308
  Transmission Date: 20170428
  Serious: Yes (Life-Threatening, Hospitalization)
  Sender: FDA-Public Use
  Company Number: TR-INCYTE CORPORATION-2017IN001421

PATIENT
  Age: 71 Year
  Sex: Female
  Weight: 55 kg

DRUGS (4)
  1. PAROL [Concomitant]
     Active Substance: ACETAMINOPHEN
     Indication: PAIN
     Dosage: 1 G, QD
     Route: 042
     Dates: start: 20170217, end: 20170220
  2. JAKAVI [Suspect]
     Active Substance: RUXOLITINIB
     Indication: MYELOFIBROSIS
     Dosage: 5 MG, BID
     Route: 048
     Dates: start: 20161118, end: 20170217
  3. TRADOLEX [Concomitant]
     Indication: PAIN
     Dosage: 100 MG, QD
     Route: 042
     Dates: start: 20170217, end: 20170220
  4. IESEF [Concomitant]
     Indication: PNEUMONIA
     Dosage: 1 G, BID
     Route: 042
     Dates: start: 20170219, end: 20170220

REACTIONS (11)
  - Thrombocytopenia [Unknown]
  - Decreased appetite [Unknown]
  - Pyuria [Unknown]
  - Asthenia [Unknown]
  - Confusional state [Unknown]
  - Cough [Unknown]
  - Fatigue [Unknown]
  - Leukocytosis [Unknown]
  - Anaemia [Unknown]
  - Pain [Unknown]
  - Pyrexia [Unknown]

NARRATIVE: CASE EVENT DATE: 20170217
